FAERS Safety Report 5677925-2 (Version None)
Quarter: 2008Q1

REPORT INFORMATION
  Report Type: 
  Country: None (occurrence: None)
  Receive Date: 20080325
  Receipt Date: 20080312
  Transmission Date: 20080703
  Serious: Yes (Hospitalization)
  Sender: FDA-Public Use
  Company Number: NO-RANBAXY-2008RR-13784

PATIENT

DRUGS (6)
  1. TOPIRAMATE [Suspect]
     Dosage: 50 MG, QD
     Dates: start: 19980101
  2. TOPIRAMATE [Suspect]
     Dosage: 200 MG, UNK
  3. TOPIRAMATE [Suspect]
     Dosage: 250 MG, QD
     Dates: start: 19980301
  4. TOPIRAMATE [Suspect]
     Dosage: 275 MG, UNK
     Dates: start: 19980401
  5. TOPIRAMATE [Suspect]
     Dosage: 300 MG, QD
  6. CARBAMAZEPINE [Concomitant]
     Dosage: 800 MG, QD

REACTIONS (1)
  - HEPATIC FAILURE [None]
